FAERS Safety Report 9961254 (Version 2)
Quarter: 2014Q1

REPORT INFORMATION
  Report Type: Spontaneous
  Country: DK (occurrence: GB)
  Receive Date: 20140305
  Receipt Date: 20140313
  Transmission Date: 20141002
  Serious: Yes (Life-Threatening, Hospitalization, Congenital Anomaly)
  Sender: FDA-Public Use
  Company Number: GB-FRI-1000060274

PATIENT
  Sex: Female

DRUGS (1)
  1. CITALOPRAM [Suspect]
     Route: 064
     Dates: end: 20060613

REACTIONS (9)
  - Laryngeal stenosis [Not Recovered/Not Resolved]
  - Cardiomegaly [Unknown]
  - Respiratory disorder [Unknown]
  - Respiratory tract infection [Unknown]
  - Pneumonia [Unknown]
  - Croup infectious [Unknown]
  - Stridor [Unknown]
  - Wheezing [Unknown]
  - Foetal exposure during pregnancy [Unknown]
